FAERS Safety Report 14450174 (Version 1)
Quarter: 2018Q1

REPORT INFORMATION
  Report Type: Spontaneous
  Country: TW (occurrence: TW)
  Receive Date: 20180129
  Receipt Date: 20180129
  Transmission Date: 20180509
  Serious: Yes (Other)
  Sender: FDA-Public Use
  Company Number: TW-UNICHEM PHARMACEUTICALS (USA) INC-UCM201801-000015

PATIENT
  Age: 27 Year
  Sex: Female

DRUGS (5)
  1. QUETIAPINE. [Suspect]
     Active Substance: QUETIAPINE
  2. LITHIUM. [Concomitant]
     Active Substance: LITHIUM
  3. PREDNISOLONE. [Concomitant]
     Active Substance: PREDNISOLONE
  4. OLANZAPINE. [Concomitant]
     Active Substance: OLANZAPINE
  5. DIVALPROEX SODIUM. [Suspect]
     Active Substance: DIVALPROEX SODIUM

REACTIONS (2)
  - Drug interaction [Recovered/Resolved]
  - Drug reaction with eosinophilia and systemic symptoms [Recovered/Resolved]
